FAERS Safety Report 14430803 (Version 1)
Quarter: 2018Q1

REPORT INFORMATION
  Report Type: Spontaneous
  Country: US (occurrence: US)
  Receive Date: 20180123
  Receipt Date: 20180123
  Transmission Date: 20180509
  Serious: Yes (Congenital Anomaly)
  Sender: FDA-Public Use
  Company Number: None

PATIENT
  Sex: Female

DRUGS (1)
  1. ZOFRAN [Suspect]
     Active Substance: ONDANSETRON HYDROCHLORIDE
     Indication: HYPEREMESIS GRAVIDARUM
     Dosage: ?          QUANTITY:1 TABLET(S);?
     Route: 060
     Dates: start: 20150824, end: 20151231

REACTIONS (2)
  - Anomaly of external ear congenital [None]
  - Maternal drugs affecting foetus [None]

NARRATIVE: CASE EVENT DATE: 20160226
